FAERS Safety Report 14444899 (Version 3)
Quarter: 2018Q1

REPORT INFORMATION
  Report Type: Spontaneous
  Country: US (occurrence: US)
  Receive Date: 20180126
  Receipt Date: 20180209
  Transmission Date: 20180509
  Serious: Yes (Hospitalization)
  Sender: FDA-Public Use
  Company Number: US-LUNDBECK-DKLU2042967

PATIENT
  Age: 47 Year
  Sex: Male

DRUGS (10)
  1. NORTHERA [Suspect]
     Active Substance: DROXIDOPA
     Dosage: 100MG TID WITH 600 MG TID TO MAKE UP 700 MG TID.?OVERDOSE: 2100 MG
     Route: 048
     Dates: end: 20180113
  2. PROBIOTIC [Concomitant]
     Active Substance: PROBIOTICS NOS
     Indication: PRODUCT USED FOR UNKNOWN INDICATION
     Route: 065
  3. MULTIVITAMIN [Concomitant]
     Active Substance: VITAMINS
     Indication: PRODUCT USED FOR UNKNOWN INDICATION
     Route: 065
  4. NORTHERA [Suspect]
     Active Substance: DROXIDOPA
     Indication: AUTONOMIC NEUROPATHY
     Route: 048
     Dates: start: 201506
  5. NORTHERA [Suspect]
     Active Substance: DROXIDOPA
     Dosage: 100 MG TID WITH 600 MG TID TO MAKE UP 700 MG TID.?OVERDOSE:2100 MG
     Route: 048
     Dates: end: 20180113
  6. WARFARIN [Concomitant]
     Active Substance: WARFARIN
     Indication: PRODUCT USED FOR UNKNOWN INDICATION
     Route: 065
  7. NORTHERA [Suspect]
     Active Substance: DROXIDOPA
     Route: 048
     Dates: start: 20150807, end: 201801
  8. KLONOPIN [Concomitant]
     Active Substance: CLONAZEPAM
     Indication: PRODUCT USED FOR UNKNOWN INDICATION
     Route: 065
  9. NORTHERA [Suspect]
     Active Substance: DROXIDOPA
     Indication: ORTHOSTATIC HYPOTENSION
     Route: 048
     Dates: start: 201506
  10. NORTHERA [Suspect]
     Active Substance: DROXIDOPA
     Route: 048
     Dates: start: 201506, end: 20180112

REACTIONS (9)
  - Dyspnoea [Unknown]
  - Abdominal pain [Unknown]
  - Drug effect decreased [Unknown]
  - Dizziness [Unknown]
  - Presyncope [Unknown]
  - Diarrhoea [Unknown]
  - Dysstasia [Unknown]
  - Hypotension [Unknown]
  - Overdose [Recovered/Resolved]

NARRATIVE: CASE EVENT DATE: 20180118
